FAERS Safety Report 7357514-4 (Version None)
Quarter: 2011Q1

REPORT INFORMATION
  Report Type: 
  Country: None (occurrence: None)
  Receive Date: 20110309
  Receipt Date: 20110221
  Transmission Date: 20110831
  Serious: Yes (Hospitalization)
  Sender: FDA-Public Use
  Company Number: 2011MA001600

PATIENT
  Age: 4 Year
  Sex: Female

DRUGS (1)
  1. PHENOBARBITAL ELIXIR USP (ALPHARMA) (PHENOBARBITAL) [Suspect]
     Indication: CONVULSION
     Dosage: 15 MG;TID;PO
     Route: 048

REACTIONS (2)
  - STOMATITIS [None]
  - ERYTHEMA MULTIFORME [None]
